FAERS Safety Report 24233405 (Version 2)
Quarter: 2024Q4

REPORT INFORMATION
  Report Type: Spontaneous
  Country: US (occurrence: US)
  Receive Date: 20240821
  Receipt Date: 20241008
  Transmission Date: 20250114
  Serious: No
  Sender: SANOFI AVENTIS
  Company Number: US-SA-SAC20240820000046

PATIENT
  Age: 32 Year
  Sex: Male

DRUGS (2)
  1. DUPIXENT [Suspect]
     Active Substance: DUPILUMAB
     Indication: Dermatitis
     Dosage: 300 MG/QOW
     Route: 058
  2. INVEGA HAFYERA [Concomitant]
     Active Substance: PALIPERIDONE PALMITATE

REACTIONS (2)
  - Dry skin [Not Recovered/Not Resolved]
  - Product use in unapproved indication [Unknown]
